FAERS Safety Report 8180954-0 (Version None)
Quarter: 2012Q1

REPORT INFORMATION
  Report Type: 
  Country: None (occurrence: None)
  Receive Date: 20120302
  Receipt Date: 20120227
  Transmission Date: 20120608
  Serious: Yes (Life-Threatening, Hospitalization)
  Sender: FDA-Public Use
  Company Number: US-PFIZER INC-2012051541

PATIENT
  Sex: Male

DRUGS (10)
  1. FLUOROURACIL [Suspect]
     Indication: HEAD AND NECK CANCER
     Dosage: 1000 MG/M2, DAILY
     Dates: start: 20111208
  2. AMBIEN [Concomitant]
     Dosage: UNK
  3. BLINDED THERAPY [Suspect]
     Indication: HEAD AND NECK CANCER
     Dosage: UNK
     Dates: start: 20111208
  4. COMPAZINE [Concomitant]
     Dosage: UNK
  5. ZOFRAN [Concomitant]
     Dosage: UNK
  6. ATIVAN [Concomitant]
     Dosage: UNK
  7. CARBOPLATIN [Suspect]
     Indication: HEAD AND NECK CANCER
     Dosage: UNK
     Dates: start: 20111208
  8. CLEOCIN HYDROCHLORIDE [Concomitant]
     Dosage: UNK
  9. FISH OIL [Concomitant]
     Dosage: UNK
  10. THORAZINE [Concomitant]
     Dosage: UNK

REACTIONS (1)
  - PNEUMATOSIS INTESTINALIS [None]
